FAERS Safety Report 9175978 (Version 1)
Quarter: 2013Q1

REPORT INFORMATION
  Report Type: Spontaneous
  Country: KR (occurrence: KR)
  Receive Date: 20130320
  Receipt Date: 20130320
  Transmission Date: 20140127
  Serious: Yes (Life-Threatening, Hospitalization, Other)
  Sender: FDA-Public Use
  Company Number: KR-009507513-1303KOR007471

PATIENT
  Age: 85 Year
  Sex: Female

DRUGS (6)
  1. SIMVASTATIN [Suspect]
     Route: 048
  2. CARVEDILOL [Suspect]
  3. DILTIAZEM HYDROCHLORIDE [Suspect]
  4. NIFEDIPINE [Suspect]
  5. ASPIRIN [Suspect]
  6. ALCOHOL [Suspect]

REACTIONS (2)
  - Overdose [Unknown]
  - Coma [Recovered/Resolved]
